FAERS Safety Report 8179499-3 (Version None)
Quarter: 2012Q1

REPORT INFORMATION
  Report Type: 
  Country: None (occurrence: None)
  Receive Date: 20120302
  Receipt Date: 20120224
  Transmission Date: 20120608
  Serious: Yes (Other)
  Sender: FDA-Public Use
  Company Number: US-JNJFOC-20120213276

PATIENT
  Sex: Female
  Weight: 49.9 kg

DRUGS (1)
  1. ORTHO TRI-CYCLEN LO [Suspect]
     Indication: CONTRACEPTION
     Route: 048
     Dates: start: 20100101, end: 20100101

REACTIONS (5)
  - CERVIX CARCINOMA [None]
  - LOSS OF LIBIDO [None]
  - GASTROINTESTINAL DISORDER [None]
  - VULVOVAGINAL DRYNESS [None]
  - HORMONE LEVEL ABNORMAL [None]
